FAERS Safety Report 12217609 (Version 1)
Quarter: 2016Q1

REPORT INFORMATION
  Report Type: Spontaneous
  Country: IT (occurrence: IT)
  Receive Date: 20160329
  Receipt Date: 20160329
  Transmission Date: 20160526
  Serious: Yes (Other)
  Sender: FDA-Public Use
  Company Number: IT-TEVA-646062ACC

PATIENT
  Age: 80 Year
  Sex: Male

DRUGS (7)
  1. MIRTAZAPINE. [Suspect]
     Active Substance: MIRTAZAPINE
     Indication: BEHAVIOURAL AND PSYCHIATRIC SYMPTOMS OF DEMENTIA
     Dosage: 30 MILLIGRAM DAILY; 30 MG DAILY
     Route: 048
     Dates: start: 20160101, end: 20160121
  2. LAROXYL - 40MG/ML GOCCE ORALI SOLUZIONE - TEOFARMA S.R.L [Suspect]
     Active Substance: AMITRIPTYLINE
     Indication: BEHAVIOURAL AND PSYCHIATRIC SYMPTOMS OF DEMENTIA
     Dosage: 7 GTT DAILY; 7 GTT DAILY
     Route: 048
     Dates: start: 20160101, end: 20160121
  3. LASIX [Concomitant]
     Active Substance: FUROSEMIDE
     Indication: PRODUCT USED FOR UNKNOWN INDICATION
     Route: 048
  4. PLAVIX - 75 MG COMPRESSE FILMRIVESTITE [Concomitant]
     Indication: PRODUCT USED FOR UNKNOWN INDICATION
     Route: 048
  5. BISOPROLOL HEMIFUMARATE [Concomitant]
     Active Substance: BISOPROLOL FUMARATE
     Indication: PRODUCT USED FOR UNKNOWN INDICATION
     Dosage: 2.5 MG
     Route: 048
  6. SERENASE - 2 MG/ML GOCCE ORALI SOLUZIONE [Suspect]
     Active Substance: HALOPERIDOL
     Indication: BEHAVIOURAL AND PSYCHIATRIC SYMPTOMS OF DEMENTIA
     Dosage: 20 GTT DAILY; 20 GTT DAILY
     Route: 048
     Dates: start: 20160101, end: 20160121
  7. TRITTICO - 75 MG COMPRESSE A RILASCIO PROLUNGATO [Suspect]
     Active Substance: TRAZODONE HYDROCHLORIDE
     Indication: BEHAVIOURAL AND PSYCHIATRIC SYMPTOMS OF DEMENTIA
     Dosage: 2 DOSAGE FORMS DAILY; 2 DF DAILY
     Route: 048
     Dates: start: 20160101, end: 20160121

REACTIONS (3)
  - Confusional state [Recovering/Resolving]
  - Dysarthria [Recovering/Resolving]
  - Sopor [Recovering/Resolving]

NARRATIVE: CASE EVENT DATE: 20160121
